FAERS Safety Report 9168861 (Version 1)
Quarter: 2013Q1

REPORT INFORMATION
  Report Type: Spontaneous
  Country: US (occurrence: US)
  Receive Date: 20130318
  Receipt Date: 20130318
  Transmission Date: 20140127
  Serious: Yes (Hospitalization, Other)
  Sender: FDA-Public Use
  Company Number: US-B.I. PHARMACEUTICALS,INC./RIDGEFIELD-2013-BI-06528GD

PATIENT
  Age: 59 Year
  Sex: Male
  Weight: 85 kg

DRUGS (22)
  1. PRADAXA [Suspect]
     Indication: ATRIAL FIBRILLATION
     Dosage: 300 MG
  2. PRADAXA [Suspect]
     Indication: ATRIAL FLUTTER
  3. PREDNISONE [Suspect]
  4. OMEPRAZOLE [Suspect]
  5. ALPRAZOLAM [Suspect]
  6. ASPIRIN [Suspect]
  7. AZATHIOPRINE [Suspect]
  8. DOCUSATE SODIUM [Suspect]
  9. INSULIN ASPART [Suspect]
  10. LEVOFLOXACIN [Suspect]
  11. MAGNESIUM OXIDE [Suspect]
  12. ATORVASTATIN [Suspect]
  13. METOPROLOL SUCCINATE [Suspect]
     Dosage: 50 MG
  14. METOPROLOL SUCCINATE [Suspect]
     Dosage: 100 MG
  15. OMEGA-3 FATTY ACIDS [Suspect]
  16. SODIUM POLYSTYRENE SULFONATE [Suspect]
  17. TRIMETHOPRIM-SULFAMETHOXAZOLE [Suspect]
  18. TACROLIMUS [Suspect]
  19. VALACYCLOVIR [Suspect]
  20. VORICONAZOLE [Suspect]
  21. FUROSEMIDE [Suspect]
     Route: 048
  22. VITAMIN B COMPLEX WITH VITAMIN C [Suspect]

REACTIONS (4)
  - Cardiac failure [Unknown]
  - Atrial flutter [Unknown]
  - Diabetes mellitus [Unknown]
  - Rash maculo-papular [Recovered/Resolved]
